FAERS Safety Report 17098784 (Version 1)
Quarter: 2019Q4

REPORT INFORMATION
  Report Type: Spontaneous
  Country: FR (occurrence: FR)
  Receive Date: 20191202
  Receipt Date: 20191202
  Transmission Date: 20200122
  Serious: Yes (Other)
  Sender: FDA-Public Use
  Company Number: FR-ROCHE-2479182

PATIENT
  Age: 62 Year
  Sex: Male
  Weight: 65 kg

DRUGS (1)
  1. ROACTEMRA [Suspect]
     Active Substance: TOCILIZUMAB
     Indication: RHEUMATOID ARTHRITIS
     Route: 058
     Dates: start: 201810

REACTIONS (2)
  - Transaminases increased [Not Recovered/Not Resolved]
  - Pancreatitis chronic [Not Recovered/Not Resolved]

NARRATIVE: CASE EVENT DATE: 20190523
